FAERS Safety Report 21676984 (Version 1)
Quarter: 2022Q4

REPORT INFORMATION
  Report Type: Spontaneous
  Country: GB (occurrence: GB)
  Receive Date: 20221203
  Receipt Date: 20221203
  Transmission Date: 20230112
  Serious: Yes (Hospitalization)
  Sender: FDA-Public Use
  Company Number: GB-MHRA-MED-202211241154172620-KFTSP

PATIENT
  Age: 25 Year
  Sex: Male
  Weight: 65 kg

DRUGS (4)
  1. EMTRICITABINE\TENOFOVIR [Suspect]
     Active Substance: EMTRICITABINE\TENOFOVIR
     Indication: Adverse drug reaction
     Dosage: EMTRICITABINE 200MG, DURATION: 1 MONTHS
     Route: 065
     Dates: start: 20221010, end: 202211
  2. EMTRICITABINE\TENOFOVIR [Suspect]
     Active Substance: EMTRICITABINE\TENOFOVIR
     Indication: Prophylaxis against HIV infection
  3. TENOFOVIR [Suspect]
     Active Substance: TENOFOVIR
     Indication: Adverse drug reaction
     Dosage: 245 MILLIGRAM DAILY; 245MG ONCE DAILY, DURATION: 31 DAYS
     Route: 065
     Dates: start: 20221010, end: 20221110
  4. TENOFOVIR [Suspect]
     Active Substance: TENOFOVIR
     Indication: Prophylaxis against HIV infection

REACTIONS (4)
  - Skin burning sensation [Recovering/Resolving]
  - Paraesthesia [Recovering/Resolving]
  - Asthenia [Recovering/Resolving]
  - Palpitations [Recovering/Resolving]

NARRATIVE: CASE EVENT DATE: 20221001
